FAERS Safety Report 7033677-5 (Version None)
Quarter: 2010Q4

REPORT INFORMATION
  Report Type: 
  Country: None (occurrence: None)
  Receive Date: 20101007
  Receipt Date: 20100929
  Transmission Date: 20110411
  Serious: Yes (Hospitalization, Other)
  Sender: FDA-Public Use
  Company Number: IR-ROXANE LABORATORIES, INC.-2010-RO-01288RO

PATIENT
  Age: 32 Year
  Sex: Male

DRUGS (1)
  1. PROPRANOLOL [Suspect]
     Dosage: 2400 MG
     Route: 048

REACTIONS (2)
  - DRUG TOXICITY [None]
  - JOINT DISLOCATION [None]
